FAERS Safety Report 4921335-X (Version None)
Quarter: 2006Q1

REPORT INFORMATION
  Report Type: 
  Country: None (occurrence: None)
  Receive Date: 20060224
  Receipt Date: 20060216
  Transmission Date: 20060701
  Serious: Yes (Other)
  Sender: FDA-Public Use
  Company Number: PHBS2006NL02501

PATIENT
  Sex: Female

DRUGS (1)
  1. VOLTAREN [Suspect]

REACTIONS (2)
  - ACCIDENTAL EXPOSURE [None]
  - DRUG EXPOSURE DURING PREGNANCY [None]
